APPROVED DRUG PRODUCT: AMINOSYN 4.25% W/ DEXTROSE 25% IN PLASTIC CONTAINER
Active Ingredient: AMINO ACIDS; DEXTROSE
Strength: 4.25%;25GM/100ML
Dosage Form/Route: INJECTABLE;INJECTION
Application: N019119 | Product #001
Applicant: ABBOTT LABORATORIES PHARMACEUTICAL PRODUCTS DIV
Approved: Oct 11, 1984 | RLD: No | RS: No | Type: DISCN